FAERS Safety Report 8687442 (Version 3)
Quarter: 2012Q4

REPORT INFORMATION
  Report Type: 
  Country: ES (occurrence: ES)
  Receive Date: 20120727
  Receipt Date: 20121003
  Transmission Date: 20130627
  Serious: Yes (Other)
  Sender: FDA-Public Use
  Company Number: ES-SANOFI-AVENTIS-2012SA051598

PATIENT
  Age: 50 Year
  Sex: Male
  Weight: 50 kg

DRUGS (4)
  1. FASTURTEC [Suspect]
     Indication: NON-HODGKIN^S LYMPHOMA
     Dosage: freq.: every 4 days; for 30 min
     Route: 042
     Dates: start: 20120410, end: 20120414
  2. CITARABINA [Suspect]
     Indication: NON-HODGKIN^S LYMPHOMA
     Dosage: freq: every 4 days
     Route: 042
     Dates: start: 20120410, end: 20120414
  3. RANITIDINA [Concomitant]
     Indication: PROPHYLAXIS
     Route: 048
     Dates: start: 20111230
  4. VORICONAZOLE [Concomitant]
     Indication: PROPHYLAXIS
     Route: 048
     Dates: start: 20111024

REACTIONS (1)
  - Hepatitis cholestatic [Recovering/Resolving]
